FAERS Safety Report 4657929-9 (Version None)
Quarter: 2005Q2

REPORT INFORMATION
  Report Type: 
  Country: None (occurrence: None)
  Receive Date: 20050510
  Receipt Date: 20050428
  Transmission Date: 20051028
  Serious: Yes (Hospitalization)
  Sender: FDA-Public Use
  Company Number: FR-SANOFI-SYNTHELABO-A02200501180

PATIENT
  Age: 63 Year
  Sex: Male

DRUGS (5)
  1. STILNOX [Suspect]
     Indication: SLEEP DISORDER
     Route: 048
     Dates: start: 20031208, end: 20041018
  2. PLAVIX [Suspect]
     Indication: PROSTHESIS IMPLANTATION
     Route: 048
  3. DETENSIEL [Suspect]
     Indication: HYPERTENSION
     Route: 048
     Dates: end: 20050223
  4. LEXOMIL [Suspect]
     Indication: ANXIETY
     Route: 048
  5. CHRONADALATE [Suspect]
     Indication: ANGINA PECTORIS
     Route: 048

REACTIONS (6)
  - DRUG INEFFECTIVE [None]
  - ECZEMA [None]
  - EYELID DISORDER [None]
  - PRURITUS [None]
  - PSORIASIS [None]
  - WOUND SECRETION [None]
